FAERS Safety Report 21392410 (Version 1)
Quarter: 2022Q3

REPORT INFORMATION
  Report Type: Spontaneous
  Country: US (occurrence: US)
  Receive Date: 20220929
  Receipt Date: 20220929
  Transmission Date: 20221027
  Serious: No
  Sender: FDA-Public Use
  Company Number: US-JNJFOC-20220952079

PATIENT
  Age: 73 Year
  Sex: Male
  Weight: 84.898 kg

DRUGS (1)
  1. REMICADE [Suspect]
     Active Substance: INFLIXIMAB
     Indication: Colitis ulcerative
     Route: 041
     Dates: start: 2020

REACTIONS (3)
  - Urinary tract infection [Unknown]
  - Pyrexia [Unknown]
  - Prostatitis [Unknown]

NARRATIVE: CASE EVENT DATE: 20220902
